FAERS Safety Report 18482171 (Version 1)
Quarter: 2020Q4

REPORT INFORMATION
  Report Type: Other
  Country: CA (occurrence: CA)
  Receive Date: 20201109
  Receipt Date: 20201109
  Transmission Date: 20210114
  Serious: No
  Sender: FDA-Public Use
  Company Number: CA-TOLMAR, INC.-20CA022956

PATIENT
  Sex: Male
  Weight: 78.46 kg

DRUGS (1)
  1. ELIGARD [Suspect]
     Active Substance: LEUPROLIDE ACETATE
     Indication: METASTASES TO SPINE
     Dosage: 45 MG, Q 6 MONTH
     Route: 058

REACTIONS (2)
  - Anaemia [Unknown]
  - Off label use [Unknown]
